FAERS Safety Report 15420330 (Version 3)
Quarter: 2018Q4

REPORT INFORMATION
  Report Type: Report from Study
  Country: JP (occurrence: JP)
  Receive Date: 20180924
  Receipt Date: 20181227
  Transmission Date: 20190204
  Serious: Yes (Death, Other)
  Sender: FDA-Public Use
  Company Number: JP-009507513-1809JPN002244J

PATIENT
  Age: 62 Year
  Sex: Female
  Weight: 37 kg

DRUGS (12)
  1. ACICLOVIR [Concomitant]
     Active Substance: ACYCLOVIR
     Dosage: UNK, QD
     Route: 048
     Dates: start: 20180703, end: 20180812
  2. NEORAL [Concomitant]
     Active Substance: CYCLOSPORINE
     Dosage: UNK, 5 TIMES PER DAY
     Route: 048
     Dates: start: 20180705, end: 20180705
  3. NEORAL [Concomitant]
     Active Substance: CYCLOSPORINE
     Dosage: UNK UNK, QID
     Route: 048
     Dates: start: 20180707, end: 20180708
  4. PREVYMIS [Suspect]
     Active Substance: LETERMOVIR
     Indication: ANTIVIRAL PROPHYLAXIS
     Dosage: 240 MILLIGRAM, QD
     Route: 041
     Dates: start: 20180813, end: 20180904
  5. PREVYMIS [Suspect]
     Active Substance: LETERMOVIR
     Indication: ANTIVIRAL PROPHYLAXIS
     Dosage: 240 MILLIGRAM, QD
     Route: 048
     Dates: start: 20180614, end: 20180812
  6. CICLOSPORIN [Concomitant]
     Active Substance: CYCLOSPORINE
     Indication: ACUTE MYELOID LEUKAEMIA
     Dosage: UNK UNK, BID
     Route: 048
     Dates: start: 20180709
  7. ACICLOVIR [Concomitant]
     Active Substance: ACYCLOVIR
     Dosage: UNK, 5 TIMES PER DAY
     Route: 048
     Dates: start: 20180628, end: 20180702
  8. NEORAL [Concomitant]
     Active Substance: CYCLOSPORINE
     Indication: ACUTE MYELOID LEUKAEMIA
     Dosage: UNK UNK, TID
     Route: 048
     Dates: start: 20180704, end: 20180704
  9. NEORAL [Concomitant]
     Active Substance: CYCLOSPORINE
     Dosage: UNK UNK, 5 TIMES PER DAY
     Route: 048
     Dates: start: 20180706, end: 20180706
  10. NEORAL [Concomitant]
     Active Substance: CYCLOSPORINE
     Dosage: UNK UNK, BID
     Dates: start: 20180710, end: 20180724
  11. NEORAL [Concomitant]
     Active Substance: CYCLOSPORINE
     Dosage: UNK UNK, TID
     Route: 048
     Dates: start: 20180709, end: 20180709
  12. ACICLOVIR [Concomitant]
     Active Substance: ACYCLOVIR
     Indication: PROPHYLAXIS
     Dosage: UNK UNK, 5 TIMES PER DAY
     Route: 048
     Dates: start: 20180604, end: 20180616

REACTIONS (3)
  - Renal impairment [Recovered/Resolved]
  - Incorrect dose administered [Unknown]
  - Acute myeloid leukaemia [Fatal]

NARRATIVE: CASE EVENT DATE: 20180724
